FAERS Safety Report 15158172 (Version 1)
Quarter: 2018Q3

REPORT INFORMATION
  Report Type: Spontaneous
  Country: US (occurrence: US)
  Receive Date: 20180718
  Receipt Date: 20180718
  Transmission Date: 20181010
  Serious: Yes (Disabling, Other)
  Sender: FDA-Public Use
  Company Number: US-REGENERON PHARMACEUTICALS, INC.-2018-29608

PATIENT

DRUGS (2)
  1. EYLEA [Suspect]
     Active Substance: AFLIBERCEPT
     Dosage: OD, LAST DOSE PRIOR EVENTS
     Dates: start: 20180618, end: 20180618
  2. EYLEA [Suspect]
     Active Substance: AFLIBERCEPT
     Indication: NEOVASCULAR AGE-RELATED MACULAR DEGENERATION
     Dosage: UNK
     Dates: end: 20180618

REACTIONS (3)
  - Blindness transient [Recovered/Resolved]
  - Anterior chamber cell [Unknown]
  - Vitreous haze [Unknown]

NARRATIVE: CASE EVENT DATE: 20180620
